FAERS Safety Report 14276847 (Version 1)
Quarter: 2017Q4

REPORT INFORMATION
  Report Type: Spontaneous
  Country: NZ (occurrence: NZ)
  Receive Date: 20171212
  Receipt Date: 20171212
  Transmission Date: 20180321
  Serious: Yes (Other)
  Sender: FDA-Public Use
  Company Number: NZ-BAXTER-2017BAX041600

PATIENT
  Sex: Male

DRUGS (24)
  1. SALBUTAMOL [Concomitant]
     Active Substance: ALBUTEROL
     Indication: PRODUCT USED FOR UNKNOWN INDICATION
     Dosage: ROUTE OF ADMIN: INHALATION, DOSE: PRESSURIZED 100 MCG/ACTUATION AND 2 ACTUATION QID INHALED AS NEEDE
     Route: 055
  2. NAPROSYN [Concomitant]
     Active Substance: NAPROXEN
     Indication: PRODUCT USED FOR UNKNOWN INDICATION
     Route: 065
  3. COLECALCIFEROL [Concomitant]
     Active Substance: CHOLECALCIFEROL
     Indication: PRODUCT USED FOR UNKNOWN INDICATION
     Route: 065
  4. ENDOXAN, 2000MG, POWDER FOR INJECTION [Suspect]
     Active Substance: CYCLOPHOSPHAMIDE
     Indication: GOUT
     Route: 065
  5. SULPHASALAZINE [Suspect]
     Active Substance: SULFASALAZINE
     Indication: RHEUMATIC DISORDER
     Route: 065
  6. METHOTREXATE. [Suspect]
     Active Substance: METHOTREXATE
     Indication: RHEUMATIC DISORDER
     Dosage: ONCE WEEKLY ON MONDAY
     Route: 048
     Dates: start: 201506
  7. METHYLPREDNISOLONE. [Suspect]
     Active Substance: METHYLPREDNISOLONE
     Indication: PRODUCT USED FOR UNKNOWN INDICATION
     Route: 065
  8. PARACETAMOL [Concomitant]
     Active Substance: ACETAMINOPHEN
     Indication: PRODUCT USED FOR UNKNOWN INDICATION
     Route: 048
  9. METOPROLOL SUCCINATE. [Suspect]
     Active Substance: METOPROLOL SUCCINATE
     Indication: SUPRAVENTRICULAR TACHYCARDIA
     Dosage: TABLET MODIFIED RELEASE
     Route: 048
  10. FOLIC ACID. [Concomitant]
     Active Substance: FOLIC ACID
     Indication: PRODUCT USED FOR UNKNOWN INDICATION
     Dosage: WEEKLY ON FRIDAY
     Route: 048
  11. MICREME H [Concomitant]
     Indication: PRODUCT USED FOR UNKNOWN INDICATION
     Route: 061
  12. ENDOXAN, 2000MG, POWDER FOR INJECTION [Suspect]
     Active Substance: CYCLOPHOSPHAMIDE
     Indication: NEUROPATHY PERIPHERAL
  13. PLAQUENIL [Suspect]
     Active Substance: HYDROXYCHLOROQUINE SULFATE
     Indication: RHEUMATIC DISORDER
     Route: 065
     Dates: start: 201507
  14. HUMIRA [Suspect]
     Active Substance: ADALIMUMAB
     Indication: PRODUCT USED FOR UNKNOWN INDICATION
     Route: 065
  15. NORTRIPTYLINE [Concomitant]
     Active Substance: NORTRIPTYLINE
     Indication: PRODUCT USED FOR UNKNOWN INDICATION
     Dosage: NOCTE
     Route: 065
  16. ASPIRIN. [Concomitant]
     Active Substance: ASPIRIN
     Indication: PRODUCT USED FOR UNKNOWN INDICATION
     Route: 065
  17. VERAPAMIL [Suspect]
     Active Substance: VERAPAMIL HYDROCHLORIDE
     Indication: SUPRAVENTRICULAR TACHYCARDIA
     Route: 065
  18. CELECOXIB. [Concomitant]
     Active Substance: CELECOXIB
     Indication: PRODUCT USED FOR UNKNOWN INDICATION
     Route: 048
  19. OMEPRAZOLE. [Concomitant]
     Active Substance: OMEPRAZOLE
     Indication: PRODUCT USED FOR UNKNOWN INDICATION
     Dosage: MODIFIED RELEASE
     Route: 048
  20. ENDOXAN, 2000MG, POWDER FOR INJECTION [Suspect]
     Active Substance: CYCLOPHOSPHAMIDE
     Indication: DEMYELINATION
  21. TRAMADOL. [Concomitant]
     Active Substance: TRAMADOL
     Indication: PRODUCT USED FOR UNKNOWN INDICATION
     Route: 065
  22. ENBREL [Suspect]
     Active Substance: ETANERCEPT
     Indication: PRODUCT USED FOR UNKNOWN INDICATION
     Route: 030
  23. ALLOPURINOL. [Concomitant]
     Active Substance: ALLOPURINOL
     Indication: GOUT
     Route: 065
     Dates: end: 201510
  24. PREDNISONE. [Concomitant]
     Active Substance: PREDNISONE
     Indication: PRODUCT USED FOR UNKNOWN INDICATION
     Route: 065

REACTIONS (13)
  - Polyarthritis [Not Recovered/Not Resolved]
  - Disease progression [Not Recovered/Not Resolved]
  - Treatment failure [Unknown]
  - Supraventricular tachycardia [Unknown]
  - Demyelination [Unknown]
  - Joint effusion [Unknown]
  - Carpal tunnel syndrome [Unknown]
  - Neuropathy peripheral [Unknown]
  - Arthritis [Recovered/Resolved]
  - Prostatism [Unknown]
  - Rheumatic disorder [Unknown]
  - Disease recurrence [Unknown]
  - Bronchitis [Unknown]

NARRATIVE: CASE EVENT DATE: 20170911
